FAERS Safety Report 6885620-7 (Version None)
Quarter: 2010Q3

REPORT INFORMATION
  Report Type: 
  Country: None (occurrence: None)
  Receive Date: 20100729
  Receipt Date: 20080625
  Transmission Date: 20110219
  Serious: No
  Sender: FDA-Public Use
  Company Number: US-PFIZER INC-2008019654

PATIENT
  Age: 6 Year
  Sex: Male

DRUGS (2)
  1. CELEBREX [Suspect]
     Indication: JUVENILE ARTHRITIS
     Dates: start: 20071201
  2. WARFARIN [Concomitant]

REACTIONS (1)
  - DRUG INEFFECTIVE [None]
